FAERS Safety Report 6148699-6 (Version None)
Quarter: 2009Q2

REPORT INFORMATION
  Report Type: 
  Country: None (occurrence: None)
  Receive Date: 20090408
  Receipt Date: 20090330
  Transmission Date: 20091009
  Serious: Yes (Hospitalization)
  Sender: FDA-Public Use
  Company Number: FR-BAXTER-2009BH004931

PATIENT
  Age: 70 Year
  Sex: Male

DRUGS (8)
  1. ENDOXAN BAXTER [Suspect]
     Indication: POLYNEUROPATHY
     Route: 065
     Dates: start: 20090127, end: 20090207
  2. TEGELINE [Suspect]
     Indication: POLYNEUROPATHY
     Route: 042
     Dates: start: 20090124, end: 20090129
  3. TEGELINE [Suspect]
     Indication: OFF LABEL USE
     Route: 042
     Dates: start: 20090124, end: 20090129
  4. PREDNISOLONE [Concomitant]
     Indication: DRUG USE FOR UNKNOWN INDICATION
     Route: 065
  5. STABLON [Concomitant]
     Indication: DRUG USE FOR UNKNOWN INDICATION
     Route: 065
  6. ZYPREXA [Concomitant]
     Indication: DRUG USE FOR UNKNOWN INDICATION
     Route: 065
  7. CALCIDOSE [Concomitant]
     Indication: DRUG USE FOR UNKNOWN INDICATION
     Route: 065
  8. FOSAMAX [Concomitant]
     Indication: DRUG USE FOR UNKNOWN INDICATION
     Route: 065

REACTIONS (1)
  - PULMONARY EMBOLISM [None]
